FAERS Safety Report 21008408 (Version 1)
Quarter: 2022Q2

REPORT INFORMATION
  Report Type: Spontaneous
  Country: BR (occurrence: BR)
  Receive Date: 20220627
  Receipt Date: 20220627
  Transmission Date: 20220721
  Serious: Yes (Death, Other)
  Sender: FDA-Public Use
  Company Number: BR-PFIZER INC-2017377675

PATIENT
  Age: 44 Year
  Sex: Female

DRUGS (1)
  1. ENBREL [Suspect]
     Active Substance: ETANERCEPT
     Indication: Rheumatoid arthritis
     Dosage: UNK
     Route: 065
     Dates: start: 2015, end: 2020

REACTIONS (4)
  - Death [Fatal]
  - Sensitivity to weather change [Unknown]
  - Renal disorder [Unknown]
  - Pain [Unknown]

NARRATIVE: CASE EVENT DATE: 20170801
